FAERS Safety Report 15064716 (Version 1)
Quarter: 2018Q2

REPORT INFORMATION
  Report Type: Spontaneous
  Country: US (occurrence: US)
  Receive Date: 20180625
  Receipt Date: 20180625
  Transmission Date: 20180711
  Serious: No
  Sender: FDA-Public Use
  Company Number: US-AMGEN-USASP2016080871

PATIENT
  Age: 60 Year
  Sex: Female

DRUGS (1)
  1. REPATHA [Suspect]
     Active Substance: EVOLOCUMAB
     Indication: PRODUCT USED FOR UNKNOWN INDICATION
     Dosage: 140 ML, Q2WK
     Route: 065
     Dates: start: 201601

REACTIONS (9)
  - Product storage error [Unknown]
  - Pain in extremity [Not Recovered/Not Resolved]
  - Accident [Unknown]
  - Mobility decreased [Not Recovered/Not Resolved]
  - Depression [Unknown]
  - Rotator cuff syndrome [Unknown]
  - Neck pain [Not Recovered/Not Resolved]
  - Pain [Not Recovered/Not Resolved]
  - Inappropriate schedule of drug administration [Unknown]
